FAERS Safety Report 7269820-2 (Version None)
Quarter: 2011Q1

REPORT INFORMATION
  Report Type: 
  Country: None (occurrence: None)
  Receive Date: 20110202
  Receipt Date: 20110124
  Transmission Date: 20110831
  Serious: Yes (Other)
  Sender: FDA-Public Use
  Company Number: DE-US-EMD SERONO, INC.-7038645

PATIENT
  Age: 35 Year
  Sex: Female

DRUGS (2)
  1. REBIF [Suspect]
  2. REBIF [Suspect]
     Indication: MULTIPLE SCLEROSIS

REACTIONS (1)
  - GAMMA-GLUTAMYLTRANSFERASE INCREASED [None]
